FAERS Safety Report 7780211-8 (Version None)
Quarter: 2011Q3

REPORT INFORMATION
  Report Type: 
  Country: None (occurrence: None)
  Receive Date: 20110927
  Receipt Date: 20110927
  Transmission Date: 20111222
  Serious: No
  Sender: FDA-Public Use
  Company Number: None

PATIENT
  Sex: Female
  Weight: 92.532 kg

DRUGS (1)
  1. ENBREL [Suspect]
     Indication: RHEUMATOID ARTHRITIS
     Dosage: 50 MG
     Route: 058
     Dates: start: 20070308, end: 20110512

REACTIONS (8)
  - HYPOAESTHESIA [None]
  - DYSGRAPHIA [None]
  - GAIT DISTURBANCE [None]
  - IMPAIRED WORK ABILITY [None]
  - ASTHENIA [None]
  - NERVE INJURY [None]
  - MOTOR DYSFUNCTION [None]
  - MOVEMENT DISORDER [None]
